FAERS Safety Report 8129564-1 (Version None)
Quarter: 2012Q1

REPORT INFORMATION
  Report Type: 
  Country: None (occurrence: None)
  Receive Date: 20120210
  Receipt Date: 20120209
  Transmission Date: 20120608
  Serious: Yes (Hospitalization)
  Sender: FDA-Public Use
  Company Number: US-GLAXOSMITHKLINE-A0887152A

PATIENT
  Age: 70 Year
  Sex: Male

DRUGS (1)
  1. AVANDIA [Suspect]
     Indication: DIABETES MELLITUS
     Dosage: 4MG TWICE PER DAY
     Route: 048
     Dates: start: 20000714, end: 20090901

REACTIONS (10)
  - PERIPHERAL VASCULAR DISORDER [None]
  - SYNCOPE [None]
  - ARRHYTHMIA [None]
  - HIP FRACTURE [None]
  - STENT PLACEMENT [None]
  - MOVEMENT DISORDER [None]
  - HEART RATE IRREGULAR [None]
  - CORONARY ARTERY DISEASE [None]
  - SPINAL FRACTURE [None]
  - UPPER LIMB FRACTURE [None]
